FAERS Safety Report 8112931-X (Version None)
Quarter: 2012Q1

REPORT INFORMATION
  Report Type: 
  Country: None (occurrence: None)
  Receive Date: 20120131
  Receipt Date: 20120119
  Transmission Date: 20120608
  Serious: Yes (Other)
  Sender: FDA-Public Use
  Company Number: AUR-APL-2012-00666

PATIENT
  Age: 45 Year
  Sex: Male
  Weight: 114 kg

DRUGS (1)
  1. AMOXICILLIN [Suspect]
     Indication: URINARY TRACT INFECTION
     Dosage: 1500 MG (500 MG, 3 IN 1 D), ORAL
     Route: 048
     Dates: start: 20111216, end: 20111221

REACTIONS (5)
  - RECTAL HAEMORRHAGE [None]
  - CONDITION AGGRAVATED [None]
  - EPISTAXIS [None]
  - URINARY TRACT INFECTION [None]
  - ABDOMINAL PAIN LOWER [None]
